FAERS Safety Report 15742467 (Version 3)
Quarter: 2021Q2

REPORT INFORMATION
  Report Type: Spontaneous
  Country: US (occurrence: US)
  Receive Date: 20181219
  Receipt Date: 20210525
  Transmission Date: 20210716
  Serious: Yes (Other)
  Sender: FDA-Public Use
  Company Number: PHEH2018US053264

PATIENT
  Sex: Male

DRUGS (1)
  1. TASIGNA [Suspect]
     Active Substance: NILOTINIB
     Indication: CHRONIC MYELOID LEUKAEMIA
     Dosage: 02 DF, BID
     Route: 048
     Dates: start: 20131015, end: 2018

REACTIONS (17)
  - Coronary artery disease [Unknown]
  - Arteriosclerosis [Unknown]
  - Oedema [Unknown]
  - Coronary artery occlusion [Unknown]
  - Dyslipidaemia [Unknown]
  - Anaemia [Unknown]
  - Injury [Unknown]
  - Weight increased [Unknown]
  - Pain [Unknown]
  - Renal failure [Unknown]
  - Chest pain [Unknown]
  - Anxiety [Unknown]
  - Aortic aneurysm [Unknown]
  - Nephropathy [Unknown]
  - Emotional distress [Unknown]
  - Angina unstable [Unknown]
  - Gastrooesophageal reflux disease [Unknown]

NARRATIVE: CASE EVENT DATE: 2018
